FAERS Safety Report 8573969-1 (Version None)
Quarter: 2012Q3

REPORT INFORMATION
  Report Type: 
  Country: None (occurrence: None)
  Receive Date: 20120806
  Receipt Date: 20120724
  Transmission Date: 20120928
  Serious: Yes (Other)
  Sender: FDA-Public Use
  Company Number: FR-JNJFOC-20120802514

PATIENT
  Sex: Female
  Weight: 64 kg

DRUGS (5)
  1. VANCOMYCIN [Concomitant]
     Route: 042
     Dates: start: 20120427, end: 20120427
  2. XARELTO [Suspect]
     Indication: KNEE ARTHROPLASTY
     Route: 048
     Dates: start: 20120427
  3. ACETAMINOPHEN [Concomitant]
  4. BISOPROLOL FUMARATE AND HYDROCHLOROTHIAZIDE [Concomitant]
  5. XARELTO [Suspect]
     Indication: THROMBOSIS PROPHYLAXIS
     Route: 048
     Dates: start: 20120427

REACTIONS (2)
  - THROMBOSIS [None]
  - DRUG INEFFECTIVE [None]
